FAERS Safety Report 7796142-3 (Version None)
Quarter: 2011Q4

REPORT INFORMATION
  Report Type: 
  Country: None (occurrence: None)
  Receive Date: 20111004
  Receipt Date: 20110928
  Transmission Date: 20120403
  Serious: Yes (Hospitalization)
  Sender: FDA-Public Use
  Company Number: PHEH2011US05397

PATIENT
  Age: 78 Year
  Sex: Female

DRUGS (1)
  1. TOBI [Suspect]
     Dosage: 300 MG, BID, 28 DAYS ON AND 28 DAYS OFF
     Dates: start: 20080501

REACTIONS (1)
  - ANGINA PECTORIS [None]
